FAERS Safety Report 20069021 (Version 1)
Quarter: 2021Q4

REPORT INFORMATION
  Report Type: Spontaneous
  Country: DE (occurrence: DE)
  Receive Date: 20211115
  Receipt Date: 20211115
  Transmission Date: 20220303
  Serious: Yes (Other)
  Sender: FDA-Public Use
  Company Number: DE-OTSUKA-2017_021123

PATIENT
  Age: 83 Year
  Sex: Male

DRUGS (2)
  1. SAMSCA [Suspect]
     Active Substance: TOLVAPTAN
     Indication: Inappropriate antidiuretic hormone secretion
     Dosage: 30 UNK, UNK
     Route: 065
  2. SAMSCA [Suspect]
     Active Substance: TOLVAPTAN
     Dosage: 7.5 UNK, UNK
     Route: 065

REACTIONS (5)
  - Immunodeficiency [Unknown]
  - Gastrointestinal infection [Unknown]
  - Gastroenteritis [Unknown]
  - Wrong technique in product usage process [Unknown]
  - Off label use [Unknown]
